FAERS Safety Report 20344476 (Version 3)
Quarter: 2022Q1

REPORT INFORMATION
  Report Type: Spontaneous
  Country: BR (occurrence: BR)
  Receive Date: 20220118
  Receipt Date: 20220328
  Transmission Date: 20220424
  Serious: Yes (Hospitalization)
  Sender: FDA-Public Use
  Company Number: BR-GLAXOSMITHKLINE-BR2021AMR265984

PATIENT
  Sex: Female

DRUGS (4)
  1. FLUTICASONE FUROATE\VILANTEROL TRIFENATATE [Suspect]
     Active Substance: FLUTICASONE FUROATE\VILANTEROL TRIFENATATE
     Indication: Chronic obstructive pulmonary disease
     Dosage: 1 PUFF(S), QD 100/25MCG 30D
     Route: 055
  2. PURAN [Suspect]
     Active Substance: LEVOTHYROXINE SODIUM
     Indication: Product used for unknown indication
     Dosage: 50 MG
  3. LOSARTAN [Suspect]
     Active Substance: LOSARTAN
     Indication: Product used for unknown indication
     Dosage: 50 MG
  4. OCUPRESS [Suspect]
     Active Substance: CARTEOLOL HYDROCHLORIDE
     Indication: Ocular discomfort
     Dosage: UNK, QD

REACTIONS (6)
  - Viral infection [Recovered/Resolved]
  - Dyspnoea [Not Recovered/Not Resolved]
  - Fatigue [Unknown]
  - Therapeutic product effect incomplete [Unknown]
  - Product dose omission issue [Unknown]
  - Product complaint [Unknown]
